FAERS Safety Report 21552335 (Version 1)
Quarter: 2022Q4

REPORT INFORMATION
  Report Type: Spontaneous
  Country: US (occurrence: US)
  Receive Date: 20221104
  Receipt Date: 20221104
  Transmission Date: 20230113
  Serious: Yes (Hospitalization, Other)
  Sender: FDA-Public Use
  Company Number: US-NOVOPROD-972957

PATIENT
  Age: 65 Year
  Sex: Male

DRUGS (3)
  1. TRESIBA [Suspect]
     Active Substance: INSULIN DEGLUDEC
     Dosage: 64 IU, QD (RESTARTED AND STOPPED IN HOSPITAL)
     Route: 058
     Dates: start: 202210
  2. TRESIBA [Suspect]
     Active Substance: INSULIN DEGLUDEC
     Indication: Type 2 diabetes mellitus
     Dosage: UNK (STOPPED)
     Route: 058
     Dates: start: 2017
  3. TRESIBA [Suspect]
     Active Substance: INSULIN DEGLUDEC
     Dosage: 64 IU, QD (RESTARTED)
     Route: 058
     Dates: start: 20221014

REACTIONS (2)
  - Diabetic foot [Recovering/Resolving]
  - Osteomyelitis [Recovering/Resolving]

NARRATIVE: CASE EVENT DATE: 20221001
